FAERS Safety Report 13678636 (Version 1)
Quarter: 2017Q2

REPORT INFORMATION
  Report Type: Spontaneous
  Country: US (occurrence: US)
  Receive Date: 20170622
  Receipt Date: 20170622
  Transmission Date: 20170830
  Serious: No
  Sender: FDA-Public Use
  Company Number: US-SA-2016SA119858

PATIENT
  Sex: Female

DRUGS (2)
  1. CEREZYME [Suspect]
     Active Substance: IMIGLUCERASE
     Dosage: DOSE:4800 UNIT(S)
     Route: 041
     Dates: start: 20110719, end: 2016
  2. CEREZYME [Suspect]
     Active Substance: IMIGLUCERASE
     Dosage: DOSE:4800 UNIT(S)
     Route: 041
     Dates: start: 2016

REACTIONS (1)
  - Drug dose omission [Unknown]

NARRATIVE: CASE EVENT DATE: 2016
